FAERS Safety Report 8106701-6 (Version None)
Quarter: 2012Q1

REPORT INFORMATION
  Report Type: 
  Country: None (occurrence: None)
  Receive Date: 20120202
  Receipt Date: 20120130
  Transmission Date: 20120608
  Serious: Yes (Life-Threatening, Hospitalization)
  Sender: FDA-Public Use
  Company Number: US-US-EMD SERONO, INC.-7040650

PATIENT
  Sex: Female
  Weight: 49 kg

DRUGS (6)
  1. TRAZODONE HCL [Concomitant]
     Indication: INSOMNIA
  2. CIPROFLOXACIN [Suspect]
     Indication: PROPHYLAXIS
     Dates: start: 20110202
  3. ZANAFLEX [Suspect]
     Indication: MUSCLE SPASMS
  4. REBIF [Suspect]
     Indication: MULTIPLE SCLEROSIS
     Route: 058
     Dates: start: 20031201
  5. BACLOFEN [Concomitant]
     Indication: MUSCLE SPASMS
  6. PAXIL [Concomitant]
     Indication: DEPRESSION

REACTIONS (4)
  - SUTURE RELATED COMPLICATION [None]
  - HYPOTHYROIDISM [None]
  - ADVERSE DRUG REACTION [None]
  - MUSCLE SPASMS [None]
